FAERS Safety Report 24906613 (Version 1)
Quarter: 2025Q1

REPORT INFORMATION
  Report Type: Spontaneous
  Country: US (occurrence: US)
  Receive Date: 20250130
  Receipt Date: 20250130
  Transmission Date: 20250409
  Serious: Yes (Hospitalization)
  Sender: LUNDBECK
  Company Number: US-LUNDBECK-DKLU4009996

PATIENT

DRUGS (1)
  1. VIGABATRIN [Suspect]
     Active Substance: VIGABATRIN
     Indication: Product used for unknown indication

REACTIONS (9)
  - Shock [Unknown]
  - Pancreatitis acute [Recovered/Resolved]
  - Sepsis [Unknown]
  - Hypervolaemia [Unknown]
  - Hypernatraemia [Unknown]
  - Hypokalaemia [Unknown]
  - Hyperammonaemia [Unknown]
  - Metabolic acidosis [Recovered/Resolved]
  - Glutathione decreased [Recovered/Resolved]
